FAERS Safety Report 21195219 (Version 2)
Quarter: 2022Q3

REPORT INFORMATION
  Report Type: Spontaneous
  Country: None (occurrence: CA)
  Receive Date: 20220810
  Receipt Date: 20220825
  Transmission Date: 20221026
  Serious: Yes (Hospitalization, Other)
  Sender: FDA-Public Use
  Company Number: CA-B.Braun Medical Inc.-2131681

PATIENT
  Age: 71 Year
  Sex: Female

DRUGS (23)
  1. MAGNESIUM SULFATE IN DEXTROSE [Suspect]
     Active Substance: MAGNESIUM SULFATE
  2. AMOXICILLIN TRIHYDRATE [Suspect]
     Active Substance: AMOXICILLIN
  3. ATORVASTATIN CALCIUM [Suspect]
     Active Substance: ATORVASTATIN CALCIUM
  4. AZITHROMYCIN [Suspect]
     Active Substance: AZITHROMYCIN
  5. BISACODYL [Suspect]
     Active Substance: BISACODYL
  6. CALCIUM CARBONATE [Suspect]
     Active Substance: CALCIUM CARBONATE
  7. CETIRIZINE HYDROCHLORIDE [Suspect]
     Active Substance: CETIRIZINE HYDROCHLORIDE
  8. CLARITHROMYCIN [Suspect]
     Active Substance: CLARITHROMYCIN
  9. CLOTRIMAZOLE [Suspect]
     Active Substance: CLOTRIMAZOLE
  10. DESONIDE [Suspect]
     Active Substance: DESONIDE
  11. DIPHENHYDRAMINE HYDROCHLORIDE [Suspect]
     Active Substance: DIPHENHYDRAMINE HYDROCHLORIDE
  12. DIPHENHYDRAMINE HYDROCHLORIDE\ZINC OXIDE [Suspect]
     Active Substance: DIPHENHYDRAMINE HYDROCHLORIDE\ZINC OXIDE
  13. HYDROMORPHONE HYDROCHLORIDE [Suspect]
     Active Substance: HYDROMORPHONE HYDROCHLORIDE
  14. METOCLOPRAMIDE HYDROCHLORIDE [Suspect]
     Active Substance: METOCLOPRAMIDE HYDROCHLORIDE
  15. METRONIDAZOLE [Suspect]
     Active Substance: METRONIDAZOLE
  16. NADOLOL [Suspect]
     Active Substance: NADOLOL
  17. NICODERM CQ [Suspect]
     Active Substance: NICOTINE
  18. NICOTINE [Suspect]
     Active Substance: NICOTINE
  19. PREDNISONE [Suspect]
     Active Substance: PREDNISONE
  20. PREGABALIN [Suspect]
     Active Substance: PREGABALIN
  21. SODIUM CHLORIDE [Suspect]
     Active Substance: SODIUM CHLORIDE
  22. TRIAMCINOLONE ACETONIDE\ZINC OXIDE [Suspect]
     Active Substance: TRIAMCINOLONE ACETONIDE\ZINC OXIDE
  23. PANTOPRAZOLE [Suspect]
     Active Substance: PANTOPRAZOLE

REACTIONS (1)
  - Chronic sinusitis [Not Recovered/Not Resolved]
